FAERS Safety Report 10386178 (Version 1)
Quarter: 2014Q1

REPORT INFORMATION
  Report Type: Spontaneous
  Country: US (occurrence: None)
  Receive Date: 20140306
  Receipt Date: 20140306
  Transmission Date: 20141002
  Serious: Yes (Hospitalization)
  Sender: FDA-Public Use
  Company Number: 163-21880-13083141

PATIENT
  Age: 68 Year
  Sex: Male
  Weight: 83.9 kg

DRUGS (13)
  1. REVLIMID [Suspect]
     Indication: PLASMA CELL MYELOMA
     Dosage: 10MG, 21 IN 28 D, PO
     Route: 048
     Dates: start: 20101207
  2. ACYCLOVIR (ACICLOVIR) (TABLETS) [Concomitant]
  3. FERROUS SULFATE (ENTERIC-COATED TABLET) [Concomitant]
  4. LEVOTHYROXINE (TABLETS) [Concomitant]
  5. CENTRUM (CHEWABLE TABLET) [Concomitant]
  6. VITAMIN C (ASCORBIC ACID) [Concomitant]
  7. DEXAMETHASONE (TABLETS) [Concomitant]
  8. ASPIRIN (ACETYLSALICYLIC ACID) (CHEWABLE TABLET) [Concomitant]
  9. HYDROCODONE/ACETAMINOPHEN (REMEDEINE) [Concomitant]
  10. IMODIUM A-D (LOPERAMIDE HYDROCHLORIDE) [Concomitant]
  11. VELCADE (BORTEZOMIB) [Concomitant]
  12. VITAMIN D (ERGOCALCIFEROL) [Concomitant]
  13. MULTIVITAMINS (CAPSULES) [Concomitant]

REACTIONS (1)
  - Local swelling [None]
